FAERS Safety Report 14007023 (Version 1)
Quarter: 2017Q3

REPORT INFORMATION
  Report Type: Spontaneous
  Country: US (occurrence: UM)
  Receive Date: 20170922
  Receipt Date: 20170922
  Transmission Date: 20171128
  Serious: Yes (Other)
  Sender: FDA-Public Use
  Company Number: None

PATIENT
  Sex: Female
  Weight: 90 kg

DRUGS (8)
  1. CA MULTIVIT [Concomitant]
  2. COZAAR [Concomitant]
     Active Substance: LOSARTAN POTASSIUM
  3. MILK THISTLE [Concomitant]
     Active Substance: MILK THISTLE
  4. MELATONIN [Concomitant]
     Active Substance: MELATONIN
  5. ATORVASTIN [Suspect]
     Active Substance: ATORVASTATIN
     Indication: TRANSIENT ISCHAEMIC ATTACK
     Dosage: ?          QUANTITY:1 TABLET(S);OTHER FREQUENCY:TWICE A WEEK;?
     Route: 048
     Dates: start: 20170830, end: 20170919
  6. NORVASC [Concomitant]
     Active Substance: AMLODIPINE BESYLATE
  7. BUSPAR [Concomitant]
     Active Substance: BUSPIRONE HYDROCHLORIDE
  8. ATORVASTIN [Suspect]
     Active Substance: ATORVASTATIN
     Indication: ATRIAL SEPTAL DEFECT
     Dosage: ?          QUANTITY:1 TABLET(S);OTHER FREQUENCY:TWICE A WEEK;?
     Route: 048
     Dates: start: 20170830, end: 20170919

REACTIONS (5)
  - Dehydration [None]
  - Urinary incontinence [None]
  - Myalgia [None]
  - Foot operation [None]
  - Muscle spasms [None]

NARRATIVE: CASE EVENT DATE: 20170916
